FAERS Safety Report 24146964 (Version 1)
Quarter: 2024Q3

REPORT INFORMATION
  Report Type: Spontaneous
  Country: US (occurrence: None)
  Receive Date: 20240726
  Receipt Date: 20240726
  Transmission Date: 20241017
  Serious: No
  Sender: Public
  Company Number: None

PATIENT
  Sex: Female

DRUGS (1)
  1. STELARA [Suspect]
     Active Substance: USTEKINUMAB
     Dosage: OTHER FREQUENCY : EVERY8WEEKS;?
     Route: 042
     Dates: start: 202406

REACTIONS (4)
  - Vomiting [None]
  - Abdominal pain upper [None]
  - Abdominal pain upper [None]
  - Gastrointestinal disorder [None]
